FAERS Safety Report 12528971 (Version 8)
Quarter: 2018Q4

REPORT INFORMATION
  Report Type: Spontaneous
  Country: US (occurrence: US)
  Receive Date: 20160705
  Receipt Date: 20181204
  Transmission Date: 20190204
  Serious: Yes (Hospitalization)
  Sender: FDA-Public Use
  Company Number: US-ACTELION-A-NJ2016-138384

PATIENT
  Age: 57 Year
  Sex: Male

DRUGS (12)
  1. CALCIUM CARBONATE. [Concomitant]
     Active Substance: CALCIUM CARBONATE
     Dosage: UNK
     Dates: start: 20160514
  2. OPSUMIT [Suspect]
     Active Substance: MACITENTAN
     Indication: PULMONARY ARTERIAL HYPERTENSION
     Dosage: 10 MG, UNK
     Route: 048
     Dates: start: 20160201, end: 20160610
  3. ALBUTEROL SULFATE. [Concomitant]
     Active Substance: ALBUTEROL SULFATE
     Dosage: UNK
     Dates: start: 20160214
  4. ESBRIET [Concomitant]
     Active Substance: PIRFENIDONE
     Dosage: UNK
     Dates: start: 20160214
  5. OMEPRAZOLE. [Concomitant]
     Active Substance: OMEPRAZOLE
  6. PREDNISONE. [Concomitant]
     Active Substance: PREDNISONE
     Dosage: UNK
     Dates: start: 20160514
  7. FAMOTIDINE. [Concomitant]
     Active Substance: FAMOTIDINE
     Dosage: UNK
     Dates: start: 20160214
  8. OMEGA-3 FATTY ACIDS [Concomitant]
     Active Substance: OMEGA-3 FATTY ACIDS
     Dosage: UNK
     Dates: start: 20160514
  9. CHERATUSSIN AC [Concomitant]
     Active Substance: CODEINE PHOSPHATE\GUAIFENESIN
     Dosage: UNK
     Dates: start: 20160214
  10. OXYGEN. [Concomitant]
     Active Substance: OXYGEN
     Dosage: 5 L/MIN, UNK
  11. CODEINE W/GUAIFENESIN [Concomitant]
     Active Substance: CODEINE\GUAIFENESIN
  12. ACETYLCYSTEINE. [Concomitant]
     Active Substance: ACETYLCYSTEINE
     Dosage: UNK
     Dates: start: 20160214

REACTIONS (3)
  - Lung transplant [Recovered/Resolved]
  - Pulmonary arterial hypertension [Recovered/Resolved]
  - Oxygen consumption increased [Recovered/Resolved]

NARRATIVE: CASE EVENT DATE: 20160611
